FAERS Safety Report 8475669-5 (Version None)
Quarter: 2012Q2

REPORT INFORMATION
  Report Type: 
  Country: None (occurrence: None)
  Receive Date: 20120628
  Receipt Date: 20120620
  Transmission Date: 20120825
  Serious: Yes (Hospitalization)
  Sender: FDA-Public Use
  Company Number: US-GLAXOSMITHKLINE-A0804368A

PATIENT
  Age: 65 Year
  Sex: Male
  Weight: 103.6 kg

DRUGS (6)
  1. AVANDIA [Suspect]
     Indication: DIABETES MELLITUS
     Dosage: 4MG PER DAY
     Route: 048
     Dates: start: 20070101, end: 20071217
  2. LISINOPRIL [Concomitant]
  3. TRICOR [Concomitant]
  4. LIPITOR [Concomitant]
  5. ACTOS [Concomitant]
     Dates: start: 20071217
  6. METFORMIN HCL [Concomitant]

REACTIONS (3)
  - MYOCARDIAL INFARCTION [None]
  - ARTERIAL OCCLUSIVE DISEASE [None]
  - MEMORY IMPAIRMENT [None]
